FAERS Safety Report 7485971-1 (Version None)
Quarter: 2011Q2

REPORT INFORMATION
  Report Type: 
  Country: None (occurrence: None)
  Receive Date: 20110516
  Receipt Date: 20110516
  Transmission Date: 20111010
  Serious: No
  Sender: FDA-Public Use
  Company Number: None

PATIENT
  Sex: Male
  Weight: 101.7 kg

DRUGS (2)
  1. CISPLATIN [Suspect]
     Dosage: 181 MG
  2. ETOPOSIDE [Suspect]
     Dosage: 6.78 MG

REACTIONS (1)
  - NEUTROPENIA [None]
